FAERS Safety Report 26059821 (Version 1)
Quarter: 2025Q4

REPORT INFORMATION
  Report Type: Spontaneous
  Country: US (occurrence: US)
  Receive Date: 20251118
  Receipt Date: 20251118
  Transmission Date: 20260117
  Serious: No
  Sender: ROCHE
  Company Number: US-ROCHE-10000415914

PATIENT
  Sex: Female

DRUGS (3)
  1. ACTEMRA [Suspect]
     Active Substance: TOCILIZUMAB
     Indication: Rheumatoid arthritis
     Dosage: STRENGTH: 200 MG/10 ML
     Route: 042
     Dates: start: 202507
  2. WINREVAIR [Concomitant]
     Active Substance: SOTATERCEPT-CSRK
     Dates: start: 20250907
  3. KEVZARA [Concomitant]
     Active Substance: SARILUMAB

REACTIONS (1)
  - Haemoglobin increased [Unknown]
